FAERS Safety Report 9818266 (Version 1)
Quarter: 2014Q1

REPORT INFORMATION
  Report Type: Spontaneous
  Country: US (occurrence: US)
  Receive Date: 20140115
  Receipt Date: 20140115
  Transmission Date: 20141002
  Serious: No
  Sender: FDA-Public Use
  Company Number: US-BAYER-2014-001510

PATIENT
  Age: 49 Year
  Sex: Female
  Weight: 68 kg

DRUGS (8)
  1. ALEVE TABLET [Suspect]
     Indication: BACK PAIN
     Dosage: 220 MG, BID
     Dates: start: 2013, end: 201310
  2. ALEVE TABLET [Suspect]
     Indication: PAIN IN EXTREMITY
  3. ADVIL [Suspect]
     Indication: BACK PAIN
     Dosage: 600 MG, BID
     Dates: end: 201310
  4. ADVIL [Suspect]
     Indication: PAIN IN EXTREMITY
  5. CETIRIZINE [Concomitant]
  6. HYDROXYZINE [Concomitant]
  7. DEXAMETHASONE [Concomitant]
  8. ZYRTEC [Concomitant]
     Indication: HYPERSENSITIVITY

REACTIONS (3)
  - Swelling [None]
  - Lip swelling [None]
  - Hypersensitivity [None]
